FAERS Safety Report 5830925-1 (Version None)
Quarter: 2008Q3

REPORT INFORMATION
  Report Type: 
  Country: None (occurrence: None)
  Receive Date: 20080801
  Receipt Date: 20080205
  Transmission Date: 20090109
  Serious: No
  Sender: FDA-Public Use
  Company Number: US-BRISTOL-MYERS SQUIBB COMPANY-14065965

PATIENT
  Age: 67 Year
  Sex: Male

DRUGS (2)
  1. COUMADIN [Suspect]
     Dates: start: 20080109
  2. MAALOX [Suspect]
     Indication: STOMACH DISCOMFORT
     Dosage: MAALOX MS TOTAL STOMACH RELIEF (NCH)(BISMUTH SUBSALICYLATE) SUSPENSION.
     Route: 048
     Dates: start: 20080109

REACTIONS (1)
  - FAECES DISCOLOURED [None]
